FAERS Safety Report 4868925-0 (Version None)
Quarter: 2005Q4

REPORT INFORMATION
  Report Type: 
  Country: None (occurrence: None)
  Receive Date: 20051229
  Receipt Date: 20010104
  Transmission Date: 20060501
  Serious: Yes (Hospitalization, Other)
  Sender: FDA-Public Use
  Company Number: US-MERCK-01010328

PATIENT
  Age: 73 Year
  Sex: Female
  Weight: 70 kg

DRUGS (19)
  1. VIOXX [Suspect]
     Indication: ARTHRITIS
     Route: 048
     Dates: start: 20000201, end: 20000601
  2. GLUCOTROL [Concomitant]
     Indication: DIABETES MELLITUS NON-INSULIN-DEPENDENT
     Route: 065
     Dates: start: 19980101
  3. TOPROL-XL [Concomitant]
     Indication: HYPERTENSION
     Route: 065
     Dates: start: 19980101
  4. CATAPRES [Concomitant]
     Indication: HYPERTENSION
     Route: 065
     Dates: start: 19980301, end: 19980301
  5. CATAPRES [Concomitant]
     Route: 065
     Dates: start: 19980301
  6. HYZAAR [Concomitant]
     Indication: HYPERTENSION
     Route: 048
     Dates: start: 19980608, end: 19980101
  7. HYZAAR [Concomitant]
     Route: 048
     Dates: start: 20000323, end: 20000602
  8. HYZAAR [Concomitant]
     Route: 048
     Dates: start: 19980101, end: 20000322
  9. COZAAR [Concomitant]
     Indication: HYPERTENSION
     Route: 048
     Dates: start: 19980324, end: 19980607
  10. COZAAR [Concomitant]
     Route: 048
     Dates: start: 19980608, end: 19980101
  11. COZAAR [Concomitant]
     Route: 048
     Dates: start: 19980101, end: 20000602
  12. COZAAR [Concomitant]
     Route: 048
     Dates: start: 20000101, end: 20000802
  13. COZAAR [Concomitant]
     Route: 048
     Dates: start: 20000803
  14. NEURONTIN [Concomitant]
     Indication: NEUROPATHY PERIPHERAL
     Route: 065
     Dates: start: 19980101
  15. PREMARIN [Concomitant]
     Indication: HORMONE REPLACEMENT THERAPY
     Route: 065
     Dates: end: 20000601
  16. PROCRIT [Suspect]
     Indication: ANAEMIA
     Route: 065
  17. CARBATROL [Concomitant]
     Route: 065
     Dates: start: 20010501
  18. CARAFATE [Suspect]
     Route: 065
  19. VIOXX [Suspect]
     Indication: ARTHRALGIA
     Route: 048
     Dates: start: 20000201, end: 20000601

REACTIONS (54)
  - ABNORMAL CLOTTING FACTOR [None]
  - ACCELERATED HYPERTENSION [None]
  - ACTINIC KERATOSIS [None]
  - ALOPECIA [None]
  - AMNESIA [None]
  - ANAEMIA [None]
  - ANTICONVULSANT TOXICITY [None]
  - ANXIETY [None]
  - ARTHROPATHY [None]
  - ATRIAL FIBRILLATION [None]
  - BACK PAIN [None]
  - BALANCE DISORDER [None]
  - CARDIAC DISORDER [None]
  - CATARACT [None]
  - CATARACT OPERATION COMPLICATION [None]
  - CEREBROVASCULAR ACCIDENT [None]
  - DEPRESSION [None]
  - DERMATITIS [None]
  - DIABETIC NEUROPATHY [None]
  - DIFFICULTY IN WALKING [None]
  - DIVERTICULITIS [None]
  - DRUG ERUPTION [None]
  - DRUG HYPERSENSITIVITY [None]
  - DRUG TOXICITY [None]
  - DYSPNOEA [None]
  - EYE PAIN [None]
  - FATIGUE [None]
  - FLATULENCE [None]
  - GASTROOESOPHAGITIS [None]
  - GRAND MAL CONVULSION [None]
  - HEADACHE [None]
  - HIATUS HERNIA [None]
  - HYPERTENSION [None]
  - INTESTINAL FUNCTIONAL DISORDER [None]
  - JOINT SWELLING [None]
  - LOSS OF CONSCIOUSNESS [None]
  - MEMORY IMPAIRMENT [None]
  - MIGRAINE [None]
  - MUSCLE SPASMS [None]
  - NECK PAIN [None]
  - NEUROPATHY [None]
  - OEDEMA PERIPHERAL [None]
  - PALPITATIONS [None]
  - PHOTOSENSITIVITY REACTION [None]
  - PSORIASIS [None]
  - RASH MORBILLIFORM [None]
  - REFLUX OESOPHAGITIS [None]
  - ROAD TRAFFIC ACCIDENT [None]
  - SEASONAL ALLERGY [None]
  - SINUS DISORDER [None]
  - SKIN LESION [None]
  - SOMNOLENCE [None]
  - TEMPERATURE INTOLERANCE [None]
  - TREMOR [None]
